FAERS Safety Report 15773153 (Version 1)
Quarter: 2018Q4

REPORT INFORMATION
  Report Type: Spontaneous
  Country: CA (occurrence: CA)
  Receive Date: 20181228
  Receipt Date: 20181228
  Transmission Date: 20190205
  Serious: Yes (Other)
  Sender: FDA-Public Use
  Company Number: CA-CELLTRION INC.-2017CA010543

PATIENT

DRUGS (18)
  1. INFLECTRA [Suspect]
     Active Substance: INFLIXIMAB-DYYB
     Dosage: 1200 MG(EVERY 6 WEEKS)
     Dates: start: 20180926, end: 20180926
  2. INFLECTRA [Suspect]
     Active Substance: INFLIXIMAB-DYYB
     Dosage: 1200 MG(EVERY 6 WEEKS)
     Dates: start: 20181106
  3. RANITIDINE. [Concomitant]
     Active Substance: RANITIDINE
     Dosage: 150 MG, UNK
  4. INFLECTRA [Suspect]
     Active Substance: INFLIXIMAB-DYYB
     Dosage: 900 MG,CYCLIC, EVERY 6 WEEKS
     Route: 042
     Dates: start: 20180620
  5. INFLECTRA [Suspect]
     Active Substance: INFLIXIMAB-DYYB
     Dosage: 1200 MG(EVERY 6 WEEKS)
     Dates: start: 20181218
  6. PREDNISONE. [Concomitant]
     Active Substance: PREDNISONE
     Dosage: 5 MG, UNK
     Dates: start: 201608
  7. SUMATRIPTAN ACTAVIS [Concomitant]
     Active Substance: SUMATRIPTAN
     Dosage: 100 MG, UNK
  8. HYDROCORTISONE. [Concomitant]
     Active Substance: HYDROCORTISONE
  9. INFLECTRA [Suspect]
     Active Substance: INFLIXIMAB-DYYB
     Dosage: 900 MG,CYCLIC, THEN EVERY 8 WEEKS
     Route: 042
     Dates: start: 20180109
  10. RATIO-LENOLTEC NO 3 [Concomitant]
     Active Substance: ACETAMINOPHEN\CAFFEINE\CODEINE PHOSPHATE
     Dosage: AS NEEDED
  11. INFLECTRA [Suspect]
     Active Substance: INFLIXIMAB-DYYB
     Dosage: 900 MG,CYCLIC, THEN EVERY 8 WEEKS
     Route: 042
     Dates: start: 20180307
  12. INFLECTRA [Suspect]
     Active Substance: INFLIXIMAB-DYYB
     Dosage: 900 MG,CYCLIC, THEN EVERY 8 WEEKS
     Route: 042
     Dates: start: 20180501, end: 20180501
  13. INFLECTRA [Suspect]
     Active Substance: INFLIXIMAB-DYYB
     Dosage: 1200 CYCLIC (EVERY 6 WEEKS)
     Dates: start: 20180620
  14. INFLECTRA [Suspect]
     Active Substance: INFLIXIMAB-DYYB
     Indication: COLITIS ULCERATIVE
     Dosage: 900 MG, CYCLIC Q 0, 2, 6 WEEKS, THEN EVERY 8 WEEKS
     Route: 042
     Dates: start: 20170418
  15. INFLECTRA [Suspect]
     Active Substance: INFLIXIMAB-DYYB
     Dosage: 1200 MG(EVERY 6 WEEKS)
     Dates: start: 20180807
  16. APO NAPROXEN [Concomitant]
     Active Substance: NAPROXEN
     Dosage: 500 MG, UNK
  17. QUETIAPINE ACTAVIS [Concomitant]
     Active Substance: QUETIAPINE
     Dosage: 25 MG, UNK
  18. PAROXETINE. [Concomitant]
     Active Substance: PAROXETINE
     Dosage: 20 MG, UNK

REACTIONS (11)
  - Drug ineffective [Unknown]
  - Erythema [Not Recovered/Not Resolved]
  - Weight decreased [Unknown]
  - Oedema [Not Recovered/Not Resolved]
  - Product use issue [Unknown]
  - Body temperature fluctuation [Unknown]
  - Peripheral swelling [Unknown]
  - Condition aggravated [Recovering/Resolving]
  - Weight increased [Unknown]
  - Poor venous access [Unknown]
  - Influenza [Unknown]

NARRATIVE: CASE EVENT DATE: 20170530
